FAERS Safety Report 6695757-3 (Version None)
Quarter: 2010Q2

REPORT INFORMATION
  Report Type: 
  Country: None (occurrence: None)
  Receive Date: 20100423
  Receipt Date: 20100423
  Transmission Date: 20101027
  Serious: Yes (Other)
  Sender: FDA-Public Use
  Company Number: None

PATIENT
  Sex: Male
  Weight: 74.8435 kg

DRUGS (6)
  1. RIBAVIRIN [Suspect]
     Indication: HEPATITIS C
     Dosage: 600MG TWICE A DAY PO
     Route: 048
     Dates: start: 20100118, end: 20100403
  2. PEGASYS [Suspect]
     Indication: HEPATITIS C
     Dosage: .5 ML ONCE A WEEK SQ
     Route: 058
     Dates: start: 20100118, end: 20100403
  3. VENTOLIN DS [Concomitant]
  4. OMEPRAZOLE [Concomitant]
  5. TYLENOL ES [Concomitant]
  6. NADOLOL [Concomitant]

REACTIONS (5)
  - DISEASE RECURRENCE [None]
  - HAEMATOCHEZIA [None]
  - KIDNEY INFECTION [None]
  - PHARYNGITIS [None]
  - PLATELET COUNT DECREASED [None]
